FAERS Safety Report 12339743 (Version 1)
Quarter: 2016Q2

REPORT INFORMATION
  Report Type: Spontaneous
  Country: US (occurrence: US)
  Receive Date: 20160506
  Receipt Date: 20160506
  Transmission Date: 20160815
  Serious: No
  Sender: FDA-Public Use
  Company Number: US-ASTRAZENECA-2016SE43584

PATIENT
  Age: 15701 Day
  Sex: Female
  Weight: 104.3 kg

DRUGS (2)
  1. BYDUREON [Suspect]
     Active Substance: EXENATIDE
     Indication: TYPE 2 DIABETES MELLITUS
     Route: 058
  2. INVOKANA [Concomitant]
     Active Substance: CANAGLIFLOZIN

REACTIONS (3)
  - Headache [Unknown]
  - Neck pain [Unknown]
  - Hyperacusis [Unknown]

NARRATIVE: CASE EVENT DATE: 20160411
